FAERS Safety Report 7968453-X (Version None)
Quarter: 2011Q4

REPORT INFORMATION
  Report Type: 
  Country: None (occurrence: None)
  Receive Date: 20111122
  Receipt Date: 20110720
  Transmission Date: 20120403
  Serious: No
  Sender: FDA-Public Use
  Company Number: PHHY2010US84221

PATIENT
  Age: 44 Year
  Sex: Male
  Weight: 63 kg

DRUGS (5)
  1. VITAMIN D [Concomitant]
  2. GILENYA [Suspect]
     Indication: MULTIPLE SCLEROSIS
     Dosage: 0.5 MG, QD, ORAL ; 0.5 MG, QD, ORAL
     Route: 048
     Dates: start: 20101208
  3. GILENYA [Suspect]
     Indication: MULTIPLE SCLEROSIS
     Dosage: 0.5 MG, QD, ORAL ; 0.5 MG, QD, ORAL
     Route: 048
     Dates: start: 20110612, end: 20110714
  4. FISH OIL (FISH OIL) [Concomitant]
  5. MULTIVITAMINS (ASCORBIC ACID, ERGOCALCIFEROL, FOLIC ACID, NICOTINAMIDE [Concomitant]

REACTIONS (14)
  - FEELING HOT [None]
  - COUGH [None]
  - ASPARTATE AMINOTRANSFERASE INCREASED [None]
  - FLUSHING [None]
  - OCULAR DISCOMFORT [None]
  - EYE DISCHARGE [None]
  - EYE PAIN [None]
  - HEADACHE [None]
  - PAIN IN EXTREMITY [None]
  - DIPLOPIA [None]
  - LIVER FUNCTION TEST ABNORMAL [None]
  - THINKING ABNORMAL [None]
  - FATIGUE [None]
  - ERYTHEMA [None]
